FAERS Safety Report 9698975 (Version 1)
Quarter: 2013Q4

REPORT INFORMATION
  Report Type: Spontaneous
  Country: US (occurrence: None)
  Receive Date: 20131118
  Receipt Date: 20131118
  Transmission Date: 20140711
  Serious: Yes (Life-Threatening)
  Sender: FDA-Public Use
  Company Number: 20130627

PATIENT
  Sex: 0

DRUGS (1)
  1. VENOFER [Suspect]
     Indication: PRODUCT USED FOR UNKNOWN INDICATION
     Dosage: UNKNOWN INTRAVENOUS BOLUS
     Route: 040

REACTIONS (3)
  - Respiratory arrest [None]
  - Pulseless electrical activity [None]
  - Bradycardia [None]
